FAERS Safety Report 16736086 (Version 1)
Quarter: 2019Q3

REPORT INFORMATION
  Report Type: Spontaneous
  Country: US (occurrence: US)
  Receive Date: 20190709
  Receipt Date: 20190709
  Transmission Date: 20191005
  Serious: No
  Sender: FDA-Public Use
  Company Number: None

PATIENT
  Age: 65 Year
  Sex: Male

DRUGS (2)
  1. SUTENT [Suspect]
     Active Substance: SUNITINIB MALATE
     Indication: RETROPERITONEAL NEOPLASM METASTATIC
     Route: 048
     Dates: start: 201906
  2. SUTENT [Suspect]
     Active Substance: SUNITINIB MALATE
     Indication: METASTASES TO PERITONEUM
     Route: 048
     Dates: start: 201906

REACTIONS (1)
  - Off label use [None]

NARRATIVE: CASE EVENT DATE: 20190709
